FAERS Safety Report 11654790 (Version 4)
Quarter: 2015Q4

REPORT INFORMATION
  Report Type: Spontaneous
  Country: US (occurrence: US)
  Receive Date: 20151023
  Receipt Date: 20151027
  Transmission Date: 20160304
  Serious: Yes (Other)
  Sender: FDA-Public Use
  Company Number: CHPA2015US012231

PATIENT
  Age: 80 Year
  Sex: Male

DRUGS (4)
  1. VOLTAREN [Suspect]
     Active Substance: DICLOFENAC SODIUM
     Indication: ARTHRITIS
     Dosage: UNK TO THUMB JOINTS ON BOTH HANDS
     Route: 061
     Dates: start: 201509
  2. VOLTAREN [Suspect]
     Active Substance: DICLOFENAC SODIUM
     Indication: MUSCLE DISORDER
     Dosage: UNK, BID TO NECK
     Route: 061
     Dates: start: 201504
  3. VOLTAREN [Suspect]
     Active Substance: DICLOFENAC SODIUM
     Dosage: UNK, BID TO KNEE
     Route: 061
  4. DICLOFENAC [Suspect]
     Active Substance: DICLOFENAC
     Indication: PRODUCT USED FOR UNKNOWN INDICATION
     Route: 065

REACTIONS (8)
  - Abdominal discomfort [Unknown]
  - Expired product administered [Unknown]
  - Product use issue [Unknown]
  - Muscle disorder [Unknown]
  - Arthritis [Unknown]
  - Drug administered at inappropriate site [Unknown]
  - Therapeutic response unexpected [Unknown]
  - Inappropriate schedule of drug administration [Unknown]

NARRATIVE: CASE EVENT DATE: 201504
